FAERS Safety Report 9803421 (Version 1)
Quarter: 2014Q1

REPORT INFORMATION
  Report Type: Spontaneous
  Country: FR (occurrence: FR)
  Receive Date: 20140108
  Receipt Date: 20140108
  Transmission Date: 20141002
  Serious: Yes (Hospitalization)
  Sender: FDA-Public Use
  Company Number: FR-NOVOPROD-397071

PATIENT
  Age: 80 Year
  Sex: Male

DRUGS (3)
  1. NOVORAPID [Suspect]
     Indication: DIABETES MELLITUS
     Dosage: ONE DOSE
     Route: 058
     Dates: start: 20130822, end: 20130822
  2. CLAMOXYL (AMOXICILLIN) [Suspect]
     Indication: ENDOCARDITIS
     Dosage: 3 G, QID
     Route: 048
     Dates: start: 20130814, end: 20130819
  3. CLAMOXYL (AMOXICILLIN) [Suspect]
     Dosage: 12 G, QD
     Route: 042
     Dates: start: 20130819, end: 20130823

REACTIONS (1)
  - Renal failure acute [Recovered/Resolved]
